FAERS Safety Report 15632691 (Version 1)
Quarter: 2018Q4

REPORT INFORMATION
  Report Type: Spontaneous
  Country: US (occurrence: US)
  Receive Date: 20181115
  Receipt Date: 20181115
  Transmission Date: 20190205
  Serious: Yes (Hospitalization)
  Sender: FDA-Public Use
  Company Number: None

PATIENT
  Sex: Male
  Weight: 17.5 kg

DRUGS (3)
  1. ZINECARD [Suspect]
     Active Substance: DEXRAZOXANE HYDROCHLORIDE
     Dates: end: 20181030
  2. CISPLATIN. [Suspect]
     Active Substance: CISPLATIN
     Dates: end: 20181029
  3. DOXORUBICIN HYDROCHLORIDE. [Concomitant]
     Active Substance: DOXORUBICIN HYDROCHLORIDE
     Dates: end: 20181030

REACTIONS (7)
  - Neuropathy peripheral [None]
  - Refusal of treatment by relative [None]
  - Packed red blood cell transfusion [None]
  - Hypophosphataemia [None]
  - Hypomagnesaemia [None]
  - Pancytopenia [None]
  - Platelet transfusion [None]
